FAERS Safety Report 16850087 (Version 1)
Quarter: 2019Q3

REPORT INFORMATION
  Report Type: Other
  Country: DE (occurrence: DE)
  Receive Date: 20190925
  Receipt Date: 20190925
  Transmission Date: 20191005
  Serious: Yes (Other)
  Sender: FDA-Public Use
  Company Number: DE-MACLEODS PHARMACEUTICALS US LTD-MAC2019023024

PATIENT

DRUGS (27)
  1. VANCOMYCIN [Suspect]
     Active Substance: VANCOMYCIN
     Indication: ENDOPHTHALMITIS
  2. LEVOFLOXACIN. [Suspect]
     Active Substance: LEVOFLOXACIN
     Indication: ULCERATIVE KERATITIS
  3. MOXIFLOXACIN. [Suspect]
     Active Substance: MOXIFLOXACIN
     Indication: ULCERATIVE KERATITIS
  4. CYCLOPENTOLATE. [Suspect]
     Active Substance: CYCLOPENTOLATE
     Indication: STAPHYLOCOCCAL INFECTION
     Dosage: UNK, LOCAL APPLICATION
     Route: 050
  5. MINOCYCLINE [Suspect]
     Active Substance: MINOCYCLINE HYDROCHLORIDE
     Indication: ULCERATIVE KERATITIS
  6. NEOMYCIN/POLYMIXIN-B/GRAMICIDIN [Suspect]
     Active Substance: GRAMICIDIN\NEOMYCIN\POLYMYXIN B SULFATE
     Indication: ULCERATIVE KERATITIS
  7. DEXAMETHASONE. [Suspect]
     Active Substance: DEXAMETHASONE
     Indication: ENDOPHTHALMITIS
  8. CEFTAZIDIME. [Suspect]
     Active Substance: CEFTAZIDIME
     Indication: ENDOPHTHALMITIS
  9. LEVOFLOXACIN. [Suspect]
     Active Substance: LEVOFLOXACIN
     Indication: ENDOPHTHALMITIS
  10. VANCOMYCIN [Suspect]
     Active Substance: VANCOMYCIN
     Indication: ULCERATIVE KERATITIS
     Dosage: UNK
  11. CYCLOPENTOLATE. [Suspect]
     Active Substance: CYCLOPENTOLATE
     Indication: ULCERATIVE KERATITIS
  12. CEFTAZIDIME. [Suspect]
     Active Substance: CEFTAZIDIME
     Indication: ULCERATIVE KERATITIS
     Dosage: 120 UNK
  13. LEVOFLOXACIN. [Suspect]
     Active Substance: LEVOFLOXACIN
     Indication: STAPHYLOCOCCAL INFECTION
     Dosage: UNK, LOCAL APPLICATION
     Route: 050
  14. NEOMYCIN/POLYMIXIN-B/GRAMICIDIN [Suspect]
     Active Substance: GRAMICIDIN\NEOMYCIN\POLYMYXIN B SULFATE
     Indication: STAPHYLOCOCCAL INFECTION
     Dosage: UNK, LOCAL APPLICATION
     Route: 050
  15. NEOMYCIN/POLYMIXIN-B/GRAMICIDIN [Suspect]
     Active Substance: GRAMICIDIN\NEOMYCIN\POLYMYXIN B SULFATE
     Indication: ENDOPHTHALMITIS
  16. MINOCYCLINE [Suspect]
     Active Substance: MINOCYCLINE HYDROCHLORIDE
     Indication: STAPHYLOCOCCAL INFECTION
  17. VANCOMYCIN [Suspect]
     Active Substance: VANCOMYCIN
     Indication: STAPHYLOCOCCAL INFECTION
  18. DEXAMETHASONE. [Suspect]
     Active Substance: DEXAMETHASONE
     Indication: STAPHYLOCOCCAL INFECTION
  19. CEFTAZIDIME. [Suspect]
     Active Substance: CEFTAZIDIME
     Indication: STAPHYLOCOCCAL INFECTION
  20. MINOCYCLINE [Suspect]
     Active Substance: MINOCYCLINE HYDROCHLORIDE
     Indication: ENDOPHTHALMITIS
     Dosage: UNK
     Route: 048
  21. MOXIFLOXACIN. [Suspect]
     Active Substance: MOXIFLOXACIN
     Indication: STAPHYLOCOCCAL INFECTION
     Dosage: UNK
     Route: 048
  22. TIMOLOL. [Suspect]
     Active Substance: TIMOLOL
     Indication: ENDOPHTHALMITIS
     Dosage: UNK, LOCAL APPLICATION
     Route: 050
  23. TIMOLOL. [Suspect]
     Active Substance: TIMOLOL
     Indication: STAPHYLOCOCCAL INFECTION
  24. DEXAMETHASONE. [Suspect]
     Active Substance: DEXAMETHASONE
     Indication: ULCERATIVE KERATITIS
     Dosage: UNK, LOCAL APPLICATION
     Route: 050
  25. MOXIFLOXACIN. [Suspect]
     Active Substance: MOXIFLOXACIN
     Indication: ENDOPHTHALMITIS
  26. CYCLOPENTOLATE. [Suspect]
     Active Substance: CYCLOPENTOLATE
     Indication: ENDOPHTHALMITIS
  27. TIMOLOL. [Suspect]
     Active Substance: TIMOLOL
     Indication: ULCERATIVE KERATITIS

REACTIONS (1)
  - Drug ineffective [Unknown]
